FAERS Safety Report 5735470-X (Version None)
Quarter: 2008Q2

REPORT INFORMATION
  Report Type: 
  Country: None (occurrence: None)
  Receive Date: 20080512
  Receipt Date: 20080502
  Transmission Date: 20081010
  Serious: Yes (Other)
  Sender: FDA-Public Use
  Company Number: US-PFIZER INC-2008038728

PATIENT
  Weight: 49.9 kg

DRUGS (13)
  1. CHANTIX [Suspect]
     Indication: SMOKING CESSATION THERAPY
     Dates: start: 20070801, end: 20080101
  2. IBANDRONATE SODIUM [Concomitant]
  3. RELPAX [Concomitant]
  4. CONCERTA [Concomitant]
  5. LEXAPRO [Concomitant]
  6. BENTYL [Concomitant]
  7. MONTELUKAST SODIUM [Concomitant]
  8. ESTROTEST [Concomitant]
  9. ZYRTEC [Concomitant]
  10. VYTORIN [Concomitant]
     Dosage: TEXT:10/20
  11. TOPAMAX [Concomitant]
     Dosage: DAILY DOSE:200MG
  12. RANITIDINE [Concomitant]
  13. TRAZODONE HCL [Concomitant]

REACTIONS (6)
  - ANGER [None]
  - DEPRESSION [None]
  - INSOMNIA [None]
  - NEURALGIA [None]
  - SUICIDAL IDEATION [None]
  - VIOLENCE-RELATED SYMPTOM [None]
